FAERS Safety Report 24015263 (Version 1)
Quarter: 2024Q2

REPORT INFORMATION
  Report Type: Spontaneous
  Country: US (occurrence: US)
  Receive Date: 20240626
  Receipt Date: 20240626
  Transmission Date: 20240716
  Serious: No
  Sender: FDA-Public Use
  Company Number: US-MYLANLABS-2024M1057094

PATIENT
  Sex: Female

DRUGS (4)
  1. LATANOPROST [Suspect]
     Active Substance: LATANOPROST
     Indication: Product used for unknown indication
     Dosage: 1 GTT DROPS, QD (ONE DROP IN LEFT EYE ONCE IN NIGHT)
     Route: 047
  2. DORZOLAMIDE [Concomitant]
     Active Substance: DORZOLAMIDE
     Indication: Product used for unknown indication
     Dosage: 1 GTT DROPS, BID (ONE DROP EACH EYE MORNING AND NIGHT)
     Route: 047
  3. RHOPRESSA [Concomitant]
     Active Substance: NETARSUDIL MESYLATE
     Indication: Product used for unknown indication
     Dosage: 1 GTT DROPS, QD(ONE DROP EACH EYE ONCE IN THE NIGHT)
     Route: 047
     Dates: start: 20240605
  4. CYCLOSPORINE [Concomitant]
     Active Substance: CYCLOSPORINE
     Indication: Product used for unknown indication
     Dosage: 1 GTT DROPS, BID (ONE DROP EACH EYE MORNING AND NIGHT)
     Route: 047

REACTIONS (2)
  - Vision blurred [Unknown]
  - Product substitution issue [Unknown]
